FAERS Safety Report 21002556 (Version 1)
Quarter: 2022Q2

REPORT INFORMATION
  Report Type: Spontaneous
  Country: US (occurrence: US)
  Receive Date: 20220624
  Receipt Date: 20220624
  Transmission Date: 20220720
  Serious: No
  Sender: FDA-Public Use
  Company Number: US-BioHaven Pharmaceuticals-2022BHV001259

PATIENT
  Sex: Female

DRUGS (2)
  1. NURTEC ODT [Suspect]
     Active Substance: RIMEGEPANT SULFATE
     Indication: Migraine prophylaxis
     Route: 048
  2. NURTEC ODT [Suspect]
     Active Substance: RIMEGEPANT SULFATE
     Dosage: SHE FIRST STARTED ON NURTEC WHEN IT FIRST CAME OUT/HIT THE MARKET, HER DOCTOR PRESCRIBED IT FOR HER,
     Route: 048
     Dates: start: 20220503

REACTIONS (2)
  - Product dose omission issue [Recovered/Resolved]
  - Migraine [Recovered/Resolved]
